FAERS Safety Report 10286382 (Version 1)
Quarter: 2014Q3

REPORT INFORMATION
  Report Type: Spontaneous
  Country: US (occurrence: None)
  Receive Date: 20140707
  Receipt Date: 20140707
  Transmission Date: 20150326
  Serious: No
  Sender: FDA-Public Use
  Company Number: None

PATIENT
  Age: 40 Year
  Sex: Female

DRUGS (1)
  1. HUMATROPE [Suspect]
     Active Substance: SOMATROPIN
     Indication: DWARFISM
     Route: 058
     Dates: start: 20130612, end: 20140618

REACTIONS (6)
  - Dizziness [None]
  - Decreased appetite [None]
  - Nausea [None]
  - Abdominal tenderness [None]
  - Hyperhidrosis [None]
  - Pruritus [None]

NARRATIVE: CASE EVENT DATE: 20140612
